FAERS Safety Report 25312868 (Version 1)
Quarter: 2025Q2

REPORT INFORMATION
  Report Type: Other
  Country: US (occurrence: US)
  Receive Date: 20250514
  Receipt Date: 20250514
  Transmission Date: 20250716
  Serious: No
  Sender: TRAVERE THERAPEUTICS
  Company Number: US-TRAVERE-2025TVT00620

PATIENT
  Age: 44 Year
  Sex: Male

DRUGS (4)
  1. FILSPARI [Suspect]
     Active Substance: SPARSENTAN
     Indication: IgA nephropathy
     Route: 048
     Dates: start: 202406
  2. FILSPARI [Suspect]
     Active Substance: SPARSENTAN
     Route: 048
  3. FILSPARI [Suspect]
     Active Substance: SPARSENTAN
     Route: 048
     Dates: start: 202411
  4. FILSPARI [Suspect]
     Active Substance: SPARSENTAN
     Dosage: 400MG EVERY OTHER DAY
     Route: 048

REACTIONS (2)
  - Hypotension [None]
  - Inappropriate schedule of product administration [Unknown]

NARRATIVE: CASE EVENT DATE: 20240601
